FAERS Safety Report 7261751-7 (Version None)
Quarter: 2011Q1

REPORT INFORMATION
  Report Type: 
  Country: None (occurrence: None)
  Receive Date: 20110130
  Receipt Date: 20101025
  Transmission Date: 20110831
  Serious: No
  Sender: FDA-Public Use
  Company Number: US-ABBOTT-10P-163-0681216-00

PATIENT
  Age: 67 Year
  Sex: Female

DRUGS (4)
  1. METOFORMIN [Concomitant]
     Indication: DIABETES MELLITUS
  2. ZESTRIL [Concomitant]
     Indication: RENAL IMPAIRMENT
  3. NEXIUM [Concomitant]
     Indication: GASTROOESOPHAGEAL REFLUX DISEASE
  4. HUMIRA [Suspect]
     Indication: PSORIASIS
     Dates: start: 20100915

REACTIONS (1)
  - SINUSITIS [None]
